FAERS Safety Report 7492258-X (Version None)
Quarter: 2011Q2

REPORT INFORMATION
  Report Type: 
  Country: None (occurrence: None)
  Receive Date: 20110519
  Receipt Date: 20101216
  Transmission Date: 20111010
  Serious: No
  Sender: FDA-Public Use
  Company Number: US-NOVEN-ALL1-2010-06503

PATIENT
  Age: 11 Year
  Sex: Male

DRUGS (1)
  1. DAYTRANA [Suspect]
     Indication: PRODUCT USED FOR UNKNOWN INDICATION
     Dosage: UNK MG, 1X/DAY: QD 20MG PATCH CUT)
     Route: 062
     Dates: start: 20100101

REACTIONS (4)
  - DRUG PRESCRIBING ERROR [None]
  - DARK CIRCLES UNDER EYES [None]
  - CRYING [None]
  - WRONG TECHNIQUE IN DRUG USAGE PROCESS [None]
